FAERS Safety Report 10405239 (Version 1)
Quarter: 2014Q3

REPORT INFORMATION
  Report Type: Spontaneous
  Country: US (occurrence: US)
  Receive Date: 20140825
  Receipt Date: 20140825
  Transmission Date: 20150326
  Serious: Yes (Other)
  Sender: FDA-Public Use
  Company Number: US-BEH-2014044558

PATIENT
  Age: 53 Year
  Sex: Male

DRUGS (5)
  1. CORIFACT [Suspect]
     Active Substance: FACTOR XIII CONCENTRATE (HUMAN)
     Indication: PREOPERATIVE CARE
     Dosage: 1 MONTH BEFORE SURGERY
  2. CORIFACT [Suspect]
     Active Substance: FACTOR XIII CONCENTRATE (HUMAN)
     Indication: FACTOR XIII DEFICIENCY
     Dosage: IMMEDIATELY BEFORE INTUBATION (SURGERY)
  3. CORIFACT [Suspect]
     Active Substance: FACTOR XIII CONCENTRATE (HUMAN)
     Dosage: POSTOPERATIVE DAY 8
  4. CORIFACT [Suspect]
     Active Substance: FACTOR XIII CONCENTRATE (HUMAN)
     Dosage: 8 HOURS AFTER THE INITIAL PREOPERATIVE DOSE
  5. CORIFACT [Suspect]
     Active Substance: FACTOR XIII CONCENTRATE (HUMAN)
     Dosage: POSTOPERATIVE DAY 22

REACTIONS (2)
  - Drug ineffective [Recovered/Resolved]
  - Hypotension [Unknown]
